FAERS Safety Report 20432007 (Version 1)
Quarter: 2022Q1

REPORT INFORMATION
  Report Type: Spontaneous
  Country: AR (occurrence: AR)
  Receive Date: 20220204
  Receipt Date: 20220204
  Transmission Date: 20220423
  Serious: Yes (Other)
  Sender: FDA-Public Use
  Company Number: AR-ABBVIE-22K-007-4265706-00

PATIENT
  Sex: Female

DRUGS (1)
  1. HUMIRA [Suspect]
     Active Substance: ADALIMUMAB
     Indication: Colitis ulcerative
     Route: 058
     Dates: end: 202111

REACTIONS (2)
  - Lung neoplasm [Unknown]
  - Magnetic resonance imaging hepatobiliary abnormal [Unknown]

NARRATIVE: CASE EVENT DATE: 20211101
